FAERS Safety Report 17077116 (Version 3)
Quarter: 2019Q4

REPORT INFORMATION
  Report Type: Spontaneous
  Country: AE (occurrence: AE)
  Receive Date: 20191126
  Receipt Date: 20191212
  Transmission Date: 20200122
  Serious: Yes (Other)
  Sender: FDA-Public Use
  Company Number: AE-PFIZER INC-2019504341

PATIENT
  Age: 36 Year
  Sex: Female

DRUGS (3)
  1. IBRANCE [Suspect]
     Active Substance: PALBOCICLIB
     Indication: BREAST CANCER FEMALE
     Dosage: 125 MG, 1X/DAY (FOR 90 DAYS)
     Route: 048
     Dates: start: 20191113
  2. LETROZOLE. [Suspect]
     Active Substance: LETROZOLE
     Dosage: 2.5 MG, DAILY (FOR 90 DAYS)
     Route: 048
     Dates: start: 20191113
  3. AZITHROMYCIN ANHYDROUS. [Concomitant]
     Active Substance: AZITHROMYCIN ANHYDROUS
     Dosage: 500 MG, DAILY (FOR 3 DAYS)
     Route: 048
     Dates: start: 20191120

REACTIONS (5)
  - Dysmenorrhoea [Unknown]
  - Upper respiratory tract infection [Unknown]
  - Bone loss [Unknown]
  - Constipation [Unknown]
  - Urinary bladder haemorrhage [Unknown]
